FAERS Safety Report 18381251 (Version 1)
Quarter: 2020Q4

REPORT INFORMATION
  Report Type: Spontaneous
  Country: ZA (occurrence: ZA)
  Receive Date: 20201014
  Receipt Date: 20201014
  Transmission Date: 20210114
  Serious: Yes (Death, Other)
  Sender: FDA-Public Use
  Company Number: ZA-HORMOSAN PHARMA GMBH-2020-07109

PATIENT
  Sex: Male

DRUGS (6)
  1. URBANOL [Suspect]
     Active Substance: CLOBAZAM
     Indication: STRESS
     Dosage: 10 MILLIGRAM, UNK
     Route: 048
     Dates: end: 20200922
  2. DOPAQUEL [Suspect]
     Active Substance: QUETIAPINE
     Indication: DEPRESSION
     Dosage: 25 MILLIGRAM, UNK
     Route: 048
     Dates: end: 20200922
  3. EPILIZINE [Suspect]
     Active Substance: VALPROATE SODIUM
     Indication: DEPRESSION
     Dosage: 300 MILLIGRAM, UNK
     Route: 048
     Dates: end: 20200922
  4. DYNA LAMOTRIGINE [Suspect]
     Active Substance: LAMOTRIGINE
     Indication: DEPRESSION
     Dosage: 25 MILLIGRAM, UNK
     Route: 048
     Dates: end: 20200922
  5. SERDEP [FLUOXETINE HYDROCHLORIDE] [Suspect]
     Active Substance: FLUOXETINE HYDROCHLORIDE
     Indication: DEPRESSION
     Dosage: 50 MILLIGRAM
     Route: 048
     Dates: end: 20200922
  6. EPILIZINE [Suspect]
     Active Substance: VALPROATE SODIUM
     Dosage: 500 MILLIGRAM, UNK
     Route: 048
     Dates: end: 20200922

REACTIONS (1)
  - Pulmonary embolism [Fatal]
